FAERS Safety Report 25956813 (Version 1)
Quarter: 2025Q4

REPORT INFORMATION
  Report Type: Spontaneous
  Country: MX (occurrence: MX)
  Receive Date: 20251024
  Receipt Date: 20251024
  Transmission Date: 20260118
  Serious: Yes (Death)
  Sender: ROCHE
  Company Number: MX-ROCHE-10000417551

PATIENT
  Age: 50 Year
  Sex: Male

DRUGS (1)
  1. MABTHERA [Suspect]
     Active Substance: RITUXIMAB
     Indication: Diffuse large B-cell lymphoma
     Dosage: DOSE AND FREQUENCY WERE NOT REPORTED
     Route: 042
     Dates: start: 20250312

REACTIONS (2)
  - Pneumonia [Fatal]
  - Metastases to lung [Fatal]

NARRATIVE: CASE EVENT DATE: 20250901
